FAERS Safety Report 4316909-3 (Version None)
Quarter: 2004Q1

REPORT INFORMATION
  Report Type: 
  Country: None (occurrence: None)
  Receive Date: 20040308
  Receipt Date: 20031201
  Transmission Date: 20041129
  Serious: Yes (Other)
  Sender: FDA-Public Use
  Company Number: 03-31/128-05

PATIENT
  Age: 65 Year
  Sex: Female
  Weight: 90.7194 kg

DRUGS (10)
  1. PYRIDOSTIGMINE BROMIDE [Suspect]
     Indication: MYASTHENIA GRAVIS
     Dosage: 1 TABLET TID, ORALLY
     Route: 048
     Dates: start: 20031125, end: 20031130
  2. . [Suspect]
  3. DIOVAN [Concomitant]
  4. NERONTIN [Concomitant]
  5. VIOX [Concomitant]
  6. FLONAISE [Concomitant]
  7. ZYRTEC [Concomitant]
  8. TEGRETOL-XR [Concomitant]
  9. ADVAIR DISKUS 100/50 [Concomitant]
  10. PREMPHASE 14/14 [Concomitant]

REACTIONS (1)
  - CONVULSION [None]
